FAERS Safety Report 25009514 (Version 1)
Quarter: 2025Q1

REPORT INFORMATION
  Report Type: Spontaneous
  Country: CN (occurrence: CN)
  Receive Date: 20250225
  Receipt Date: 20250225
  Transmission Date: 20250409
  Serious: Yes (Hospitalization, Other)
  Sender: RANBAXY
  Company Number: CN-SUN PHARMACEUTICAL INDUSTRIES LTD-2025R1-495455

PATIENT
  Age: 27 Year
  Sex: Female

DRUGS (1)
  1. CITALOPRAM [Suspect]
     Active Substance: CITALOPRAM
     Indication: Depression
     Route: 065

REACTIONS (2)
  - Therapy non-responder [Unknown]
  - Condition aggravated [Unknown]
